FAERS Safety Report 10647047 (Version 2)
Quarter: 2014Q4

REPORT INFORMATION
  Report Type: Spontaneous
  Country: US (occurrence: US)
  Receive Date: 20141211
  Receipt Date: 20141222
  Transmission Date: 20150529
  Serious: Yes (Other)
  Sender: FDA-Public Use
  Company Number: US-INCYTE CORPORATION-2014IN003195

PATIENT
  Age: 73 Year
  Sex: Female

DRUGS (5)
  1. JAKAFI [Suspect]
     Active Substance: RUXOLITINIB
     Dosage: 10 MG, BID
     Dates: start: 20141101
  2. TOPROL XL [Concomitant]
     Active Substance: METOPROLOL SUCCINATE
  3. LISINOPRIL. [Concomitant]
     Active Substance: LISINOPRIL
  4. JAKAFI [Suspect]
     Active Substance: RUXOLITINIB
     Indication: MYELOFIBROSIS
     Dosage: 5 MG, BID
     Route: 048
     Dates: start: 2014, end: 2014
  5. BABY ASPIRIN [Concomitant]
     Active Substance: ASPIRIN

REACTIONS (7)
  - Oropharyngeal pain [Unknown]
  - Anaemia [Unknown]
  - Weight increased [Unknown]
  - Platelet count increased [Unknown]
  - Skin disorder [Unknown]
  - Nasopharyngitis [Unknown]
  - Pruritus [Unknown]

NARRATIVE: CASE EVENT DATE: 2014
